FAERS Safety Report 11001903 (Version 1)
Quarter: 2015Q2

REPORT INFORMATION
  Report Type: Spontaneous
  Country: CN (occurrence: CN)
  Receive Date: 20150408
  Receipt Date: 20150408
  Transmission Date: 20150821
  Serious: Yes (Hospitalization, Other)
  Sender: FDA-Public Use
  Company Number: CN-ELI_LILLY_AND_COMPANY-CN201504000984

PATIENT
  Age: 64 Year
  Sex: Male

DRUGS (2)
  1. GEMCITABINE HYDROCHLORIDE. [Suspect]
     Active Substance: GEMCITABINE HYDROCHLORIDE
     Indication: PANCREATIC CARCINOMA STAGE IV
     Dosage: 1000 MG/M2, CYCLICAL
     Route: 065
  2. ICOTINIB [Suspect]
     Active Substance: ICOTINIB
     Indication: PANCREATIC CARCINOMA STAGE IV
     Dosage: 125 MG, TID
     Route: 065

REACTIONS (5)
  - Abdominal pain [Recovered/Resolved]
  - Liver injury [Recovered/Resolved]
  - Jaundice cholestatic [Recovered/Resolved]
  - Rash [Recovered/Resolved]
  - Bone marrow failure [Recovered/Resolved]
